FAERS Safety Report 9843230 (Version 1)
Quarter: 2014Q1

REPORT INFORMATION
  Report Type: Spontaneous
  Country: US (occurrence: US)
  Receive Date: 20140124
  Receipt Date: 20140124
  Transmission Date: 20141002
  Serious: No
  Sender: FDA-Public Use
  Company Number: US-NOVEN-13US008134

PATIENT
  Sex: Female

DRUGS (1)
  1. BRISDELLE [Suspect]
     Indication: HOT FLUSH
     Dosage: 7.5 MG, UNK
     Route: 048
     Dates: start: 201310

REACTIONS (1)
  - Abdominal discomfort [Not Recovered/Not Resolved]
